FAERS Safety Report 4600108-1 (Version None)
Quarter: 2005Q1

REPORT INFORMATION
  Report Type: 
  Country: None (occurrence: None)
  Receive Date: 20050303
  Receipt Date: 20050221
  Transmission Date: 20050727
  Serious: Yes (Death, Hospitalization)
  Sender: FDA-Public Use
  Company Number: 210319

PATIENT
  Age: 80 Year
  Sex: Male

DRUGS (6)
  1. MABTHERA (RITUXIMAB) CONC FOR SOLUTION FOR INFUSION [Suspect]
     Dosage: 660 MG, INTRAVENOUS
     Route: 042
     Dates: start: 20040706, end: 20040819
  2. CYCLOPHOSPHAMIDE [Suspect]
     Dosage: 880 MG, INTRAVENOUS
     Route: 042
     Dates: start: 20040706, end: 20040819
  3. DOXORUBICIN HYDROCHLORIDE [Suspect]
     Dosage: 88 MG, INTRAVENOUS
     Route: 042
     Dates: start: 20040706, end: 20040819
  4. VINCRISTINE [Suspect]
     Dosage: 1 MG, INTRAVENOUS
     Route: 042
     Dates: start: 20040706, end: 20040819
  5. PREDNISONE [Suspect]
     Dosage: 25 MG
     Dates: end: 20040819
  6. GCSF OR GMCSF (FILGRASTIM OR SARGRAMOSTIM) [Concomitant]

REACTIONS (1)
  - NEUTROPENIC SEPSIS [None]
